FAERS Safety Report 5090214-2 (Version None)
Quarter: 2006Q3

REPORT INFORMATION
  Report Type: 
  Country: None (occurrence: None)
  Receive Date: 20060823
  Receipt Date: 20060807
  Transmission Date: 20061208
  Serious: Yes (Hospitalization)
  Sender: FDA-Public Use
  Company Number: TRP_0850_2006

PATIENT
  Age: 51 Year
  Sex: Male

DRUGS (2)
  1. RIBASPHERE [Suspect]
     Indication: HEPATITIS C
     Dosage: 1000 MG QDAY PO
     Route: 048
     Dates: start: 20060512
  2. PEGASYS [Suspect]
     Indication: HEPATITIS C
     Dosage: 180 MCG SC
     Route: 058
     Dates: start: 20060512

REACTIONS (15)
  - ANXIETY [None]
  - ASTHENIA [None]
  - BLOOD PRESSURE SYSTOLIC INCREASED [None]
  - CHEST DISCOMFORT [None]
  - CHEST PAIN [None]
  - CONSTIPATION [None]
  - CRYING [None]
  - DEHYDRATION [None]
  - DRUG INEFFECTIVE [None]
  - FEELING ABNORMAL [None]
  - HYPERTENSION [None]
  - LABYRINTHITIS [None]
  - MOOD ALTERED [None]
  - MUSCULOSKELETAL PAIN [None]
  - PARAESTHESIA [None]
